FAERS Safety Report 7942468-X (Version None)
Quarter: 2011Q4

REPORT INFORMATION
  Report Type: 
  Country: None (occurrence: None)
  Receive Date: 20111128
  Receipt Date: 20111115
  Transmission Date: 20120403
  Serious: Yes (Hospitalization)
  Sender: FDA-Public Use
  Company Number: US-GLAXOSMITHKLINE-A0950575A

PATIENT
  Age: 64 Year
  Sex: Female
  Weight: 81.8 kg

DRUGS (4)
  1. ALPRAZOLAM [Concomitant]
  2. FLOLAN [Suspect]
     Indication: PULMONARY ARTERIAL HYPERTENSION
     Dosage: 20NGKM PER DAY
     Route: 042
     Dates: start: 20111004
  3. LETAIRIS [Concomitant]
     Dosage: 10MG PER DAY
     Route: 048
  4. ADCIRCA [Concomitant]
     Dosage: 20MG PER DAY
     Route: 048

REACTIONS (6)
  - SWELLING [None]
  - FLUSHING [None]
  - SOMNOLENCE [None]
  - THERAPEUTIC RESPONSE DECREASED [None]
  - SYNCOPE [None]
  - INSOMNIA [None]
